FAERS Safety Report 22322210 (Version 1)
Quarter: 2023Q2

REPORT INFORMATION
  Report Type: Spontaneous
  Country: US (occurrence: US)
  Receive Date: 20230516
  Receipt Date: 20230516
  Transmission Date: 20230722
  Serious: No
  Sender: FDA-Public Use
  Company Number: US-SA-SAC20230515000338

PATIENT
  Sex: Female
  Weight: 136.07 kg

DRUGS (17)
  1. DUPIXENT [Suspect]
     Active Substance: DUPILUMAB
     Indication: Osteoarthritis
     Dosage: 300 MG, QOW
     Route: 058
  2. INFLECTRA [Concomitant]
     Active Substance: INFLIXIMAB-DYYB
  3. IBUPROFEN [Concomitant]
     Active Substance: IBUPROFEN
  4. MAXEPA [FISH OIL] [Concomitant]
  5. ROSUVASTATIN CALCIUM [Concomitant]
     Active Substance: ROSUVASTATIN CALCIUM
  6. AMLODIPINE BESYLATE [Concomitant]
     Active Substance: AMLODIPINE BESYLATE
  7. PANTOPRAZOLE [Concomitant]
     Active Substance: PANTOPRAZOLE
  8. NORETHINDRONE ACETATE AND ETHINYL ESTRADIOL [Concomitant]
     Active Substance: ETHINYL ESTRADIOL\NORETHINDRONE ACETATE
  9. HUMALOG [Concomitant]
     Active Substance: INSULIN LISPRO
  10. LOSARTAN POTASSIUM [Concomitant]
     Active Substance: LOSARTAN POTASSIUM
  11. TRULICITY [Concomitant]
     Active Substance: DULAGLUTIDE
  12. OXYCODONE HYDROCHLORIDE [Concomitant]
     Active Substance: OXYCODONE HYDROCHLORIDE
  13. LEVOTHYROXINE SODIUM [Concomitant]
     Active Substance: LEVOTHYROXINE SODIUM
  14. LOSARTAN [Concomitant]
     Active Substance: LOSARTAN
  15. LEVETIRACETAM [Concomitant]
     Active Substance: LEVETIRACETAM
  16. SEMGLEE [INSULIN GLARGINE] [Concomitant]
  17. ONDANSETRON IPS [ONDANSETRON HYDROCHLORIDE] [Concomitant]

REACTIONS (1)
  - Product use in unapproved indication [Unknown]
